FAERS Safety Report 8588295-4 (Version None)
Quarter: 2012Q3

REPORT INFORMATION
  Report Type: 
  Country: None (occurrence: None)
  Receive Date: 20120813
  Receipt Date: 20120731
  Transmission Date: 20120928
  Serious: Yes (Other)
  Sender: FDA-Public Use
  Company Number: US-SHIRE-SPV1-2008-00824

PATIENT
  Sex: Female
  Weight: 84 kg

DRUGS (5)
  1. CARBATROL [Suspect]
     Indication: LOSS OF CONTROL OF LEGS
     Dosage: 200 MG, 1X/DAY:QD
     Route: 048
     Dates: start: 20060901, end: 20080220
  2. REBIF                              /05982701/ [Suspect]
     Indication: MULTIPLE SCLEROSIS
     Dosage: 44 ?G, OTHER (3 IN 1 WEEK)
     Route: 058
     Dates: start: 20060913, end: 20080227
  3. GABAPENTIN [Concomitant]
     Indication: NEURALGIA
     Dosage: UNK UNK, UNKNOWN
     Route: 065
     Dates: start: 20060301, end: 20080220
  4. IBUPROFEN (ADVIL) [Concomitant]
     Indication: PAIN
     Dosage: UNK UNK, UNKNOWN
     Route: 065
  5. IBUPROFEN (ADVIL) [Concomitant]
     Indication: PREMEDICATION

REACTIONS (7)
  - ACUTE HEPATIC FAILURE [None]
  - OPTIC NEURITIS [None]
  - INSOMNIA [None]
  - OFF LABEL USE [None]
  - VOMITING [None]
  - HEPATOTOXICITY [None]
  - NAUSEA [None]
